FAERS Safety Report 6920014-7 (Version None)
Quarter: 2010Q3

REPORT INFORMATION
  Report Type: 
  Country: None (occurrence: None)
  Receive Date: 20100811
  Receipt Date: 20090819
  Transmission Date: 20110219
  Serious: Yes (Hospitalization)
  Sender: FDA-Public Use
  Company Number: ES-B.I. PHARMACEUTICALS,INC./RIDGEFIELD-2009-DE-05528GD

PATIENT
  Age: 57 Year
  Sex: Male

DRUGS (13)
  1. NEVIRAPINE [Suspect]
     Indication: HIV INFECTION
  2. DIDANOSINE [Suspect]
     Indication: HIV INFECTION
  3. STAVUDINE [Suspect]
     Indication: HIV INFECTION
  4. LAMIVUDINE [Suspect]
     Indication: HIV INFECTION
  5. EFAVIRENZ [Suspect]
     Indication: HIV INFECTION
  6. LOPINAVIR [Suspect]
     Indication: HIV INFECTION
  7. NELFINAVIR MESYLATE [Suspect]
     Indication: HIV INFECTION
  8. INDINAVIR [Suspect]
     Indication: HIV INFECTION
  9. SAQUINAVIR [Suspect]
     Indication: HIV INFECTION
  10. ZIDOVUDINE [Suspect]
     Indication: HIV INFECTION
  11. TENOFOVIR DISOPROXIL FUMARATE [Suspect]
     Indication: HIV INFECTION
  12. EMTRICITABINE [Suspect]
     Indication: HIV INFECTION
  13. RITONAVIR [Suspect]
     Indication: HIV INFECTION

REACTIONS (4)
  - OESOPHAGEAL VARICES HAEMORRHAGE [None]
  - PORTAL HYPERTENSION [None]
  - PORTAL HYPERTENSIVE GASTROPATHY [None]
  - VARICES OESOPHAGEAL [None]
